FAERS Safety Report 7888410-1 (Version None)
Quarter: 2011Q4

REPORT INFORMATION
  Report Type: 
  Country: None (occurrence: None)
  Receive Date: 20111103
  Receipt Date: 20111026
  Transmission Date: 20120403
  Serious: Yes (Other)
  Sender: FDA-Public Use
  Company Number: US-PFIZER INC-2011262442

PATIENT
  Age: 69 Year
  Sex: Male

DRUGS (3)
  1. METFORMIN HCL [Suspect]
     Dosage: UNK
  2. GLIPIZIDE [Suspect]
     Dosage: UNK
  3. LANTUS [Suspect]
     Indication: TYPE 2 DIABETES MELLITUS
     Dosage: 16 IU, 1X/DAY
     Route: 058
     Dates: start: 20100101

REACTIONS (6)
  - HUNGER [None]
  - INCORRECT ROUTE OF DRUG ADMINISTRATION [None]
  - DIABETES MELLITUS INADEQUATE CONTROL [None]
  - BLOOD GLUCOSE INCREASED [None]
  - INJECTION SITE PAIN [None]
  - INJECTION SITE HAEMORRHAGE [None]
